FAERS Safety Report 9105071 (Version 1)
Quarter: 2013Q1

REPORT INFORMATION
  Report Type: Report from Study
  Country: IT (occurrence: IT)
  Receive Date: 20130219
  Receipt Date: 20130219
  Transmission Date: 20140127
  Serious: Yes (Other)
  Sender: FDA-Public Use
  Company Number: IT-ACCORD-016479

PATIENT
  Age: 48 Year
  Sex: Male

DRUGS (2)
  1. MYCOPHENOLATE MOFETIL [Suspect]
     Indication: LIVER TRANSPLANT
  2. EVEROLIMUS [Suspect]
     Indication: LIVER TRANSPLANT

REACTIONS (3)
  - Leukopenia [Unknown]
  - Wound dehiscence [Unknown]
  - Incisional hernia [Unknown]
